FAERS Safety Report 11115860 (Version 1)
Quarter: 2015Q2

REPORT INFORMATION
  Report Type: Spontaneous
  Country: US (occurrence: US)
  Receive Date: 20150515
  Receipt Date: 20150515
  Transmission Date: 20150821
  Serious: No
  Sender: FDA-Public Use
  Company Number: US-BAYER-2015-229721

PATIENT
  Sex: Female

DRUGS (1)
  1. MAGNEVIST [Suspect]
     Active Substance: GADOPENTETATE DIMEGLUMINE
     Indication: COMPUTERISED TOMOGRAM
     Dosage: 20 CC ONCE
     Route: 042
     Dates: start: 20150511, end: 20150511

REACTIONS (4)
  - Erythema [None]
  - Tongue pruritus [None]
  - Sneezing [None]
  - Swollen tongue [None]

NARRATIVE: CASE EVENT DATE: 20150511
